FAERS Safety Report 15061544 (Version 1)
Quarter: 2018Q2

REPORT INFORMATION
  Report Type: Spontaneous
  Country: DE (occurrence: DE)
  Receive Date: 20180625
  Receipt Date: 20180625
  Transmission Date: 20180711
  Serious: Yes (Other)
  Sender: FDA-Public Use
  Company Number: DE-ANIPHARMA-2018-DE-000049

PATIENT
  Sex: Female

DRUGS (5)
  1. XIPAMIDE [Suspect]
     Active Substance: XIPAMIDE
  2. BISOPROLOL [Suspect]
     Active Substance: BISOPROLOL
  3. SODIUM BICARBONATE. [Concomitant]
     Active Substance: SODIUM BICARBONATE
  4. COLESTILAN [Suspect]
     Active Substance: COLESTILAN CHLORIDE
  5. CANDESARTAN CILEXETIL. [Suspect]
     Active Substance: CANDESARTAN CILEXETIL

REACTIONS (2)
  - Premature baby [Unknown]
  - Maternal exposure during pregnancy [Unknown]
